FAERS Safety Report 10727487 (Version 1)
Quarter: 2015Q1

REPORT INFORMATION
  Report Type: Report from Study
  Country: US (occurrence: US)
  Receive Date: 20150121
  Receipt Date: 20150121
  Transmission Date: 20150721
  Serious: Yes (Other)
  Sender: FDA-Public Use
  Company Number: US-ROCHE-1524060

PATIENT

DRUGS (3)
  1. BEVACIZUMAB [Suspect]
     Active Substance: BEVACIZUMAB
     Indication: AGE-RELATED MACULAR DEGENERATION
     Route: 050
  2. RANIBIZUMAB [Suspect]
     Active Substance: RANIBIZUMAB
     Indication: AGE-RELATED MACULAR DEGENERATION
     Route: 050
  3. PEGAPTANIB [Suspect]
     Active Substance: PEGAPTANIB
     Indication: AGE-RELATED MACULAR DEGENERATION
     Route: 050

REACTIONS (1)
  - Retinal pigment epithelial tear [Unknown]
